FAERS Safety Report 4814956-6 (Version None)
Quarter: 2005Q4

REPORT INFORMATION
  Report Type: 
  Country: None (occurrence: None)
  Receive Date: 20051028
  Receipt Date: 20051014
  Transmission Date: 20060501
  Serious: Yes (Hospitalization)
  Sender: FDA-Public Use
  Company Number: HQWYE047017OCT05

PATIENT
  Sex: Female

DRUGS (3)
  1. ENBREL [Suspect]
     Indication: RHEUMATOID ARTHRITIS
     Route: 058
     Dates: start: 20050927, end: 20051011
  2. SULFASALAZINE [Concomitant]
     Dosage: DOSE AND FREQUENCY NOT SPECIFIED
     Route: 048
  3. METHOTREXATE [Concomitant]

REACTIONS (4)
  - ABDOMINAL PAIN [None]
  - HEADACHE [None]
  - MYALGIA [None]
  - NAUSEA [None]
